FAERS Safety Report 5334254-4 (Version None)
Quarter: 2007Q2

REPORT INFORMATION
  Report Type: 
  Country: None (occurrence: None)
  Receive Date: 20070523
  Receipt Date: 20070523
  Transmission Date: 20071010
  Serious: No
  Sender: FDA-Public Use
  Company Number: None

PATIENT
  Sex: Male
  Weight: 119.7496 kg

DRUGS (7)
  1. PAXIL [Suspect]
     Indication: PANIC DISORDER
     Dosage: 30 MG QD PO
     Route: 048
     Dates: start: 19970925, end: 20070522
  2. ALBUTEROL [Concomitant]
  3. ALPRAZOLAM [Concomitant]
  4. SINGLULAIR [Concomitant]
  5. ADVAIR DISKUS 100/50 [Concomitant]
  6. AXID [Concomitant]
  7. ZANTAC [Concomitant]

REACTIONS (9)
  - DEPRESSION [None]
  - DRUG DEPENDENCE [None]
  - DRUG WITHDRAWAL SYNDROME [None]
  - EJACULATION DELAYED [None]
  - LOSS OF LIBIDO [None]
  - SEXUAL DYSFUNCTION [None]
  - SOMNOLENCE [None]
  - VISION BLURRED [None]
  - WEIGHT INCREASED [None]
